FAERS Safety Report 8581238-9 (Version None)
Quarter: 2012Q3

REPORT INFORMATION
  Report Type: 
  Country: None (occurrence: None)
  Receive Date: 20120809
  Receipt Date: 20120803
  Transmission Date: 20120928
  Serious: Yes (Other)
  Sender: FDA-Public Use
  Company Number: PHHY2012JP008937

PATIENT
  Sex: Male
  Weight: 63 kg

DRUGS (12)
  1. OXYCONTIN [Concomitant]
     Indication: METASTATIC RENAL CELL CARCINOMA
     Dosage: BETWEEN 5 MG TO 10 MG
     Route: 048
     Dates: start: 20111003, end: 20120525
  2. KALIMATE [Concomitant]
     Indication: HYPERKALAEMIA
     Dosage: 15 G, UNK
     Route: 048
     Dates: start: 20110510
  3. PURSENNID [Concomitant]
     Indication: CONSTIPATION
     Dosage: 24 G, UNK
     Route: 048
     Dates: start: 20111018, end: 20120615
  4. ZOMETA [Concomitant]
     Indication: METASTATIC RENAL CELL CARCINOMA
     Dosage: UNK UKN, UNK
     Dates: start: 20110930
  5. MAGMITT [Concomitant]
     Indication: CONSTIPATION
     Dosage: 1980 MG, UNK
     Route: 048
     Dates: start: 20111216
  6. LOXOPROFEN [Concomitant]
     Indication: METASTATIC RENAL CELL CARCINOMA
     Dosage: BETWEEN 60 MG TO 180 MG
     Route: 048
     Dates: start: 20111007
  7. FERROUS CITRATE [Concomitant]
     Indication: ANAEMIA
     Dosage: 100 MG, UNK
     Route: 048
     Dates: start: 20120210, end: 20120614
  8. PROCHLORPERAZINE [Concomitant]
     Indication: PROPHYLAXIS OF NAUSEA AND VOMITING
     Dosage: 10 MG, UNK
     Route: 048
     Dates: start: 20111101, end: 20120525
  9. AFINITOR [Suspect]
     Indication: METASTATIC RENAL CELL CARCINOMA
     Dosage: 10 MG, DAILY
     Route: 048
     Dates: start: 20111019
  10. FAMOTIDINE [Concomitant]
     Indication: GASTRITIS
     Dosage: 20 G, UNK
     Route: 048
     Dates: start: 20111018
  11. PURSENNID [Concomitant]
     Dosage: 24 G, DAILY
     Route: 048
     Dates: start: 20120615
  12. LAXOBERON [Concomitant]
     Indication: CONSTIPATION
     Dosage: UNK
     Route: 048
     Dates: start: 20120113, end: 20120113

REACTIONS (5)
  - ANAEMIA [None]
  - PERICARDIAL EFFUSION [None]
  - PLEURAL EFFUSION [None]
  - C-REACTIVE PROTEIN INCREASED [None]
  - HYPERGLYCAEMIA [None]
